FAERS Safety Report 24064963 (Version 2)
Quarter: 2024Q3

REPORT INFORMATION
  Report Type: Report from Study
  Country: HU (occurrence: HU)
  Receive Date: 20240709
  Receipt Date: 20240726
  Transmission Date: 20241016
  Serious: Yes (Life-Threatening, Other)
  Sender: TEVA
  Company Number: HU-TEVA-VS-3215412

PATIENT
  Age: 68 Year
  Sex: Male

DRUGS (6)
  1. METHOTREXATE [Suspect]
     Active Substance: METHOTREXATE
     Indication: Rheumatoid arthritis
     Route: 065
  2. ADALIMUMAB [Suspect]
     Active Substance: ADALIMUMAB\ISOPROPYL ALCOHOL
     Indication: Rheumatoid arthritis
     Route: 058
  3. RITUXIMAB [Suspect]
     Active Substance: RITUXIMAB
     Indication: Acquired haemophilia
     Dosage: ON DAYS 1, 8, 15, AND 22
     Route: 065
  4. DEXAMETHASONE [Suspect]
     Active Substance: DEXAMETHASONE
     Indication: Acquired haemophilia
     Dosage: ON DAY 15 AND 22
     Route: 065
  5. DEXAMETHASONE [Suspect]
     Active Substance: DEXAMETHASONE
     Indication: Acquired haemophilia
     Dosage: ON DAYS 1 AND 8
     Route: 065
  6. SULFASALAZINE [Suspect]
     Active Substance: SULFASALAZINE
     Indication: Rheumatoid arthritis
     Route: 065

REACTIONS (11)
  - Acquired haemophilia [Recovered/Resolved]
  - Anaemia [Unknown]
  - Drug ineffective [Unknown]
  - Haematuria [Unknown]
  - Haematoma [Unknown]
  - Klebsiella infection [Unknown]
  - Factor VIII deficiency [Recovered/Resolved]
  - Ecchymosis [Unknown]
  - Gastrointestinal haemorrhage [Unknown]
  - Syncope [Unknown]
  - Antimicrobial susceptibility test resistant [Unknown]
